FAERS Safety Report 15907444 (Version 1)
Quarter: 2019Q1

REPORT INFORMATION
  Report Type: Spontaneous
  Country: CA (occurrence: CA)
  Receive Date: 20190204
  Receipt Date: 20190204
  Transmission Date: 20190417
  Serious: Yes (Other)
  Sender: FDA-Public Use
  Company Number: CA-SA-2019SA026688

PATIENT
  Age: 73 Year
  Sex: Male

DRUGS (9)
  1. OMEPRAZOLE. [Suspect]
     Active Substance: OMEPRAZOLE
  2. COLESTID [Suspect]
     Active Substance: COLESTIPOL HYDROCHLORIDE
  3. LOPERAMIDE HYDROCHLORIDE. [Suspect]
     Active Substance: LOPERAMIDE HYDROCHLORIDE
  4. COLECALCIFEROL [Suspect]
     Active Substance: CHOLECALCIFEROL
  5. RISEDRONIC ACID [Suspect]
     Active Substance: RISEDRONIC ACID
  6. BISACODYL. [Suspect]
     Active Substance: BISACODYL
  7. PANCREATIN [Suspect]
     Active Substance: PANCRELIPASE
  8. VITAMIN B12 [Suspect]
     Active Substance: CYANOCOBALAMIN
  9. PROBIOTICS NOS [Concomitant]
     Active Substance: PROBIOTICS NOS

REACTIONS (4)
  - Abdominal pain upper [Unknown]
  - Weight fluctuation [Unknown]
  - Large intestinal ulcer [Unknown]
  - Diarrhoea [Unknown]
